FAERS Safety Report 11693167 (Version 2)
Quarter: 2015Q4

REPORT INFORMATION
  Report Type: Spontaneous
  Country: US (occurrence: None)
  Receive Date: 20151103
  Receipt Date: 20151116
  Transmission Date: 20160304
  Serious: Yes (Other)
  Sender: FDA-Public Use
  Company Number: ADR-2015-01574

PATIENT
  Age: 58 Year
  Sex: Male

DRUGS (1)
  1. BACLOFEN INTRATHECAL 2000 MCG/ML [Suspect]
     Active Substance: BACLOFEN
     Indication: MUSCLE SPASTICITY
     Dosage: 380 MCG/DAY

REACTIONS (6)
  - Serratia infection [None]
  - Implant site infection [None]
  - Medical device site cellulitis [None]
  - Wound dehiscence [None]
  - Serratia test positive [None]
  - Muscle spasticity [None]
